FAERS Safety Report 6662989-X (Version None)
Quarter: 2010Q2

REPORT INFORMATION
  Report Type: 
  Country: None (occurrence: None)
  Receive Date: 20100401
  Receipt Date: 20100326
  Transmission Date: 20101027
  Serious: Yes (Death)
  Sender: FDA-Public Use
  Company Number: JP-WYE-H14146410

PATIENT
  Sex: Female

DRUGS (2)
  1. ZOSYN [Suspect]
     Indication: PNEUMONIA
     Route: 041
     Dates: start: 20100223, end: 20100302
  2. ZOSYN [Suspect]
     Indication: CONDITION AGGRAVATED

REACTIONS (2)
  - CARDIAC FAILURE [None]
  - HEPATIC FAILURE [None]
